FAERS Safety Report 7230893-4 (Version None)
Quarter: 2011Q1

REPORT INFORMATION
  Report Type: 
  Country: None (occurrence: None)
  Receive Date: 20110118
  Receipt Date: 20110114
  Transmission Date: 20110831
  Serious: Yes (Other)
  Sender: FDA-Public Use
  Company Number: BR-ROCHE-729439

PATIENT
  Sex: Male
  Weight: 80.8 kg

DRUGS (2)
  1. RIBAVIRIN [Concomitant]
  2. PEGINTERFERON ALFA-2A [Suspect]
     Indication: HEPATITIS C
     Route: 058
     Dates: start: 20091120, end: 20100205

REACTIONS (6)
  - HYPOAESTHESIA [None]
  - RHEUMATOID ARTHRITIS [None]
  - ERYTHEMA [None]
  - OEDEMA PERIPHERAL [None]
  - VIITH NERVE PARALYSIS [None]
  - FORMICATION [None]
